FAERS Safety Report 6277353-5 (Version None)
Quarter: 2009Q3

REPORT INFORMATION
  Report Type: 
  Country: None (occurrence: None)
  Receive Date: 20090722
  Receipt Date: 20090515
  Transmission Date: 20100115
  Serious: Yes (Death)
  Sender: FDA-Public Use
  Company Number: US-BRISTOL-MYERS SQUIBB COMPANY-14590889

PATIENT
  Age: 37 Year
  Sex: Male

DRUGS (3)
  1. COUMADIN [Suspect]
     Route: 065
  2. PLAVIX [Suspect]
     Dosage: STRENGTH 75MG INCREASED TO 150 MG QD
     Route: 048
  3. ASPIRIN [Suspect]
     Route: 065

REACTIONS (4)
  - HAEMORRHAGIC STROKE [None]
  - HEADACHE [None]
  - OVERDOSE [None]
  - PLATELET FUNCTION TEST ABNORMAL [None]
